FAERS Safety Report 9471046 (Version 1)
Quarter: 2013Q3

REPORT INFORMATION
  Report Type: Spontaneous
  Country: US (occurrence: US)
  Receive Date: 20130822
  Receipt Date: 20130822
  Transmission Date: 20140515
  Serious: Yes (Other)
  Sender: FDA-Public Use
  Company Number: US-PFIZER INC-2013239820

PATIENT
  Age: 53 Year
  Sex: Female
  Weight: 104.31 kg

DRUGS (10)
  1. EPIPEN [Suspect]
     Indication: ARTHROPOD STING
     Dosage: 0.3 MG, SINGLE
     Dates: start: 20130813, end: 20130813
  2. BENADRYL [Concomitant]
     Indication: ARTHROPOD STING
     Dosage: UNK
     Route: 048
     Dates: start: 20130813
  3. ALBUTEROL [Concomitant]
     Indication: ARTHROPOD STING
     Dosage: PRN
     Route: 048
     Dates: start: 20130813, end: 20130813
  4. EFFEXOR-XR [Concomitant]
     Dosage: 300 MG AM, 75 MG AT NOON
     Route: 048
  5. TOPAMAX [Concomitant]
     Dosage: 50 MG AM, 150 MG HS
     Route: 048
  6. LANTUS [Concomitant]
     Dosage: 30 UNITS AM, 30 UNITS PM
     Route: 058
  7. NEXIUM [Concomitant]
     Dosage: QAM
     Route: 048
  8. ATIVAN [Concomitant]
     Dosage: 4MG, UNK
     Route: 048
  9. SINGULAIR [Concomitant]
     Dosage: HS
     Route: 048
  10. TRAZODONE [Concomitant]
     Dosage: 100 MG, HS
     Route: 048

REACTIONS (1)
  - Drug ineffective [Not Recovered/Not Resolved]
